FAERS Safety Report 5807819-0 (Version None)
Quarter: 2008Q3

REPORT INFORMATION
  Report Type: 
  Country: None (occurrence: None)
  Receive Date: 20080711
  Receipt Date: 20061230
  Transmission Date: 20090109
  Serious: Yes (Other)
  Sender: FDA-Public Use
  Company Number: US-PFIZER INC-2006124409

PATIENT
  Sex: Female

DRUGS (15)
  1. LIPITOR [Suspect]
  2. NORVASC [Suspect]
     Indication: BLOOD PRESSURE
  3. LESCOL [Suspect]
     Indication: BLOOD CHOLESTEROL
  4. PLETAL [Suspect]
     Indication: INTERMITTENT CLAUDICATION
  5. ZOFRAN [Suspect]
     Indication: NAUSEA
     Route: 042
  6. STATINS [Suspect]
  7. TOPROL-XL [Concomitant]
  8. ALL OTHER THERAPEUTIC PRODUCTS [Concomitant]
     Dosage: TEXT:5/50-FREQ:IN THE MORNING
  9. LEVOXYL [Concomitant]
  10. ACETYLSALICYLIC ACID SRT [Concomitant]
  11. CALCIUM WITH VITAMIN D [Concomitant]
  12. STOOL SOFTENER [Concomitant]
     Dosage: FREQ:ONCE IN THE MORNING
  13. FISH OIL [Concomitant]
  14. VITAMIN TAB [Concomitant]
     Dosage: FREQ:AT NOON
  15. DIOVAN HCT [Concomitant]
     Dosage: TEXT:160/25MG-FREQ:IN THE EVENING

REACTIONS (16)
  - ABDOMINAL PAIN [None]
  - ADVERSE REACTION [None]
  - ANGIOGRAM [None]
  - ANGIOPLASTY [None]
  - CEREBROVASCULAR ACCIDENT [None]
  - DEAFNESS [None]
  - ENDARTERECTOMY [None]
  - HERNIA [None]
  - ILL-DEFINED DISORDER [None]
  - INTERMITTENT CLAUDICATION [None]
  - JOINT SWELLING [None]
  - MUSCLE ATROPHY [None]
  - NAUSEA [None]
  - PAIN IN EXTREMITY [None]
  - STENT PLACEMENT [None]
  - VERTIGO [None]
